FAERS Safety Report 9028266 (Version 1)
Quarter: 2013Q1

REPORT INFORMATION
  Report Type: Spontaneous
  Country: US (occurrence: None)
  Receive Date: 20130115
  Receipt Date: 20130115
  Transmission Date: 20140127
  Serious: Yes (Life-Threatening, Hospitalization, Other)
  Sender: FDA-Public Use
  Company Number: None

PATIENT
  Age: 60 Year
  Sex: Female
  Weight: 80.74 kg

DRUGS (3)
  1. CARVEDILOL [Suspect]
     Indication: HYPERTENSION
     Route: 048
     Dates: start: 20121220, end: 20121222
  2. CARVEDILOL [Suspect]
     Indication: HEART RATE INCREASED
     Route: 048
     Dates: start: 20121220, end: 20121222
  3. CARVEDILOL [Suspect]
     Route: 048
     Dates: start: 20121220, end: 20121222

REACTIONS (4)
  - Drug withdrawal syndrome [None]
  - Hypotonia [None]
  - Overdose [None]
  - Drug screen positive [None]
